FAERS Safety Report 9416888 (Version 2)
Quarter: 2013Q3

REPORT INFORMATION
  Report Type: Spontaneous
  Country: FR (occurrence: FR)
  Receive Date: 20130724
  Receipt Date: 20130729
  Transmission Date: 20140515
  Serious: Yes (Hospitalization)
  Sender: FDA-Public Use
  Company Number: FR-JNJFOC-20130710534

PATIENT
  Age: 86 Year
  Sex: Female

DRUGS (2)
  1. XARELTO [Suspect]
     Indication: CEREBROVASCULAR ACCIDENT PROPHYLAXIS
     Route: 048
     Dates: start: 201304, end: 201306
  2. XARELTO [Suspect]
     Indication: ATRIAL FIBRILLATION
     Route: 048
     Dates: start: 201304, end: 201306

REACTIONS (3)
  - Rectal haemorrhage [Recovered/Resolved]
  - Cardiac failure acute [Unknown]
  - Anaemia [Unknown]
